FAERS Safety Report 9767753 (Version 2)
Quarter: 2013Q4

REPORT INFORMATION
  Report Type: Spontaneous
  Country: IT (occurrence: IT)
  Receive Date: 20131217
  Receipt Date: 20131217
  Transmission Date: 20140711
  Serious: Yes (Other)
  Sender: FDA-Public Use
  Company Number: IT-ASTRAZENECA-2013SE76112

PATIENT
  Age: 69 Year
  Sex: Male

DRUGS (3)
  1. CASODEX [Suspect]
     Indication: PROSTATE CANCER
     Route: 048
     Dates: start: 20121206
  2. ELIGARD [Suspect]
     Indication: PROSTATE CANCER
     Route: 058
  3. CAVERJECT [Concomitant]

REACTIONS (2)
  - Groin pain [Recovered/Resolved]
  - Testicular pain [Recovered/Resolved]
